FAERS Safety Report 13423258 (Version 1)
Quarter: 2017Q2

REPORT INFORMATION
  Report Type: Report from Study
  Country: JP (occurrence: JP)
  Receive Date: 20170410
  Receipt Date: 20170410
  Transmission Date: 20170830
  Serious: Yes (Other)
  Sender: FDA-Public Use
  Company Number: JP-VIFOR (INTERNATIONAL) INC.-VIT-2017-03735

PATIENT
  Age: 50 Year
  Sex: Male
  Weight: 67.3 kg

DRUGS (10)
  1. HUMALOG [Concomitant]
     Active Substance: INSULIN LISPRO
  2. FOSRENOL [Concomitant]
     Active Substance: LANTHANUM CARBONATE
     Indication: HYPERPHOSPHATAEMIA
     Route: 048
     Dates: start: 20161017
  3. VELPHORO [Suspect]
     Active Substance: FERRIC OXYHYDROXIDE
     Indication: HYPERPHOSPHATAEMIA
     Route: 048
     Dates: start: 20160725, end: 20161006
  4. AMLODIPINE [Concomitant]
     Active Substance: AMLODIPINE BESYLATE
     Route: 048
  5. LANTUS XR SOLOSTAR [Concomitant]
  6. ARGAMATE [Concomitant]
     Active Substance: CALCIUM POLYSTYRENE SULFONATE
     Route: 048
  7. TRAZENTA [Concomitant]
     Active Substance: LINAGLIPTIN
     Route: 048
  8. EPOETIN ALFA BS [Concomitant]
     Active Substance: ERYTHROPOIETIN
     Dates: end: 20160815
  9. EPOETIN ALFA BS [Concomitant]
     Active Substance: ERYTHROPOIETIN
     Dates: start: 20160822, end: 20160905
  10. MAXACALCITOL [Concomitant]
     Active Substance: MAXACALCITOL

REACTIONS (3)
  - Polycythaemia [Recovered/Resolved]
  - Haemoglobin increased [Recovered/Resolved]
  - Phlebotomy [Unknown]

NARRATIVE: CASE EVENT DATE: 20160913
